FAERS Safety Report 5484862-5 (Version None)
Quarter: 2007Q4

REPORT INFORMATION
  Report Type: 
  Country: None (occurrence: None)
  Receive Date: 20071010
  Receipt Date: 20070925
  Transmission Date: 20080405
  Serious: Yes (Hospitalization)
  Sender: FDA-Public Use
  Company Number: SPV1-2007-04419

PATIENT
  Age: 6 Year
  Sex: Female

DRUGS (1)
  1. CARBATROL [Suspect]
     Indication: GRAND MAL CONVULSION
     Dosage: 100 MG, 1X/DAY QD, ORAL
     Route: 048

REACTIONS (25)
  - ALANINE AMINOTRANSFERASE INCREASED [None]
  - ASCITES [None]
  - ASPARTATE AMINOTRANSFERASE INCREASED [None]
  - BILIRUBIN CONJUGATED INCREASED [None]
  - CHAPPED LIPS [None]
  - DROOLING [None]
  - GAMMA-GLUTAMYLTRANSFERASE INCREASED [None]
  - GINGIVAL OEDEMA [None]
  - HEART RATE INCREASED [None]
  - HEPATOSPLENOMEGALY [None]
  - HYPERSENSITIVITY [None]
  - HYPOALBUMINAEMIA [None]
  - HYPOPROTEINAEMIA [None]
  - INTERNATIONAL NORMALISED RATIO INCREASED [None]
  - LEUKOCYTOSIS [None]
  - LIP DRY [None]
  - LYMPHADENITIS [None]
  - LYMPHOCYTOSIS [None]
  - LYMPHOPENIA [None]
  - MONOCYTOSIS [None]
  - PLEURAL EFFUSION [None]
  - PROTHROMBIN TIME PROLONGED [None]
  - RESPIRATORY DISTRESS [None]
  - THROMBOCYTOPENIA [None]
  - VIRAL INFECTION [None]
